FAERS Safety Report 7083536-7 (Version None)
Quarter: 2010Q4

REPORT INFORMATION
  Report Type: 
  Country: None (occurrence: None)
  Receive Date: 20101027
  Receipt Date: 20101013
  Transmission Date: 20110411
  Serious: Yes (Hospitalization)
  Sender: FDA-Public Use
  Company Number: 019859

PATIENT
  Sex: Female

DRUGS (6)
  1. CERTOLIZUMAB PEGOL (CDP870) [Suspect]
     Indication: RHEUMATOID ARTHRITIS
     Dosage: (200 MG 1X/2 WEEKS SUBCUTANEOUS) ; (SUBCUTANEOUS)
     Route: 058
     Dates: start: 20090930, end: 20101013
  2. REBAMIPIDE [Concomitant]
  3. SALAZOSULFAPYRIDINE [Concomitant]
  4. PREDNISOLONE [Concomitant]
  5. DICLOFENAC SODIUM [Concomitant]
  6. LANSOPRAZOLE [Concomitant]

REACTIONS (4)
  - DECUBITUS ULCER [None]
  - IMMUNE SYSTEM DISORDER [None]
  - PARAESTHESIA [None]
  - WOUND INFECTION [None]
